FAERS Safety Report 10164470 (Version 1)
Quarter: 2014Q2

REPORT INFORMATION
  Report Type: Spontaneous
  Country: US (occurrence: US)
  Receive Date: 20140510
  Receipt Date: 20140510
  Transmission Date: 20141212
  Serious: No
  Sender: FDA-Public Use
  Company Number: US-BRISTOL-MYERS SQUIBB COMPANY-20196648

PATIENT
  Age: 73 Year
  Sex: Female
  Weight: 67.12 kg

DRUGS (11)
  1. BYETTA PEN DISPOSABLE [Suspect]
     Indication: TYPE 2 DIABETES MELLITUS
     Route: 058
     Dates: start: 20140209
  2. VICTOZA [Suspect]
  3. ZETIA [Concomitant]
  4. LYRICA [Concomitant]
  5. CRESTOR [Concomitant]
  6. LISINOPRIL [Concomitant]
  7. POTASSIUM [Concomitant]
  8. VITAMIN D [Concomitant]
  9. ASPIRIN [Concomitant]
  10. ALIGN [Concomitant]
  11. METAMUCIL [Concomitant]

REACTIONS (2)
  - Blood glucose decreased [Recovered/Resolved]
  - Constipation [Not Recovered/Not Resolved]
